FAERS Safety Report 25681090 (Version 2)
Quarter: 2025Q3

REPORT INFORMATION
  Report Type: Spontaneous
  Country: EU (occurrence: EU)
  Receive Date: 20250814
  Receipt Date: 20250825
  Transmission Date: 20251020
  Serious: Yes (Hospitalization)
  Sender: MYLAN
  Company Number: EU-MYLANLABS-2025M1068478

PATIENT
  Age: 83 Year
  Sex: Male

DRUGS (20)
  1. FENTANYL [Suspect]
     Active Substance: FENTANYL
     Indication: Product used for unknown indication
  2. FENTANYL [Suspect]
     Active Substance: FENTANYL
     Route: 065
  3. FENTANYL [Suspect]
     Active Substance: FENTANYL
     Route: 065
  4. FENTANYL [Suspect]
     Active Substance: FENTANYL
  5. VANCOMYCIN [Suspect]
     Active Substance: VANCOMYCIN
     Indication: Antibiotic therapy
  6. VANCOMYCIN [Suspect]
     Active Substance: VANCOMYCIN
     Route: 048
  7. VANCOMYCIN [Suspect]
     Active Substance: VANCOMYCIN
     Route: 048
  8. VANCOMYCIN [Suspect]
     Active Substance: VANCOMYCIN
  9. PIPERACILLIN AND TAZOBACTAM [Concomitant]
     Active Substance: PIPERACILLIN SODIUM\TAZOBACTAM SODIUM
     Indication: Sepsis
  10. PIPERACILLIN AND TAZOBACTAM [Concomitant]
     Active Substance: PIPERACILLIN SODIUM\TAZOBACTAM SODIUM
     Route: 065
  11. PIPERACILLIN AND TAZOBACTAM [Concomitant]
     Active Substance: PIPERACILLIN SODIUM\TAZOBACTAM SODIUM
     Route: 065
  12. PIPERACILLIN AND TAZOBACTAM [Concomitant]
     Active Substance: PIPERACILLIN SODIUM\TAZOBACTAM SODIUM
  13. DAPTOMYCIN [Concomitant]
     Active Substance: DAPTOMYCIN
     Indication: Sepsis
  14. DAPTOMYCIN [Concomitant]
     Active Substance: DAPTOMYCIN
     Route: 065
  15. DAPTOMYCIN [Concomitant]
     Active Substance: DAPTOMYCIN
     Route: 065
  16. DAPTOMYCIN [Concomitant]
     Active Substance: DAPTOMYCIN
  17. ERTAPENEM [Concomitant]
     Active Substance: ERTAPENEM
     Indication: Escherichia infection
  18. ERTAPENEM [Concomitant]
     Active Substance: ERTAPENEM
     Route: 065
  19. ERTAPENEM [Concomitant]
     Active Substance: ERTAPENEM
     Route: 065
  20. ERTAPENEM [Concomitant]
     Active Substance: ERTAPENEM

REACTIONS (2)
  - Clostridium difficile colitis [Recovered/Resolved]
  - Overdose [Unknown]
